FAERS Safety Report 5935539-0 (Version None)
Quarter: 2008Q4

REPORT INFORMATION
  Report Type: 
  Country: None (occurrence: None)
  Receive Date: 20081030
  Receipt Date: 20081007
  Transmission Date: 20090506
  Serious: No
  Sender: FDA-Public Use
  Company Number: US-BAYER-200814013BCC

PATIENT
  Sex: Male

DRUGS (1)
  1. ALEVE (CAPLET) [Suspect]
     Indication: HEADACHE
     Dosage: TOTAL DAILY DOSE: 440 MG  UNIT DOSE: 220 MG
     Dates: start: 20081007, end: 20081007

REACTIONS (1)
  - HEADACHE [None]
